FAERS Safety Report 5625757-3 (Version None)
Quarter: 2008Q1

REPORT INFORMATION
  Report Type: 
  Country: None (occurrence: None)
  Receive Date: 20080214
  Receipt Date: 20080206
  Transmission Date: 20080703
  Serious: Yes (Hospitalization, Other)
  Sender: FDA-Public Use
  Company Number: JP-BRISTOL-MYERS SQUIBB COMPANY-13829551

PATIENT
  Age: 1 Week
  Sex: Female

DRUGS (9)
  1. ABILIFY [Suspect]
     Dosage: ON 15-DEC-2006 INCREASED TO 24 MG/DAY AND DECREASED TO 9 MG/DAY ON 22-JAN-2007
     Route: 064
     Dates: start: 20061206, end: 20070613
  2. DEPAS [Suspect]
     Dosage: 5-FEB-2007 DECREASED TO 1 MG
     Route: 064
     Dates: start: 20061206, end: 20070613
  3. DORAL [Suspect]
     Route: 064
     Dates: start: 20070611, end: 20070613
  4. AKINETON [Concomitant]
     Dosage: DURATION: 8 WEEKS 3 DAYS ,1 MG TAB
     Route: 064
     Dates: start: 20061206, end: 20070613
  5. AMOXICILLIN TRIHYDRATE [Concomitant]
     Dosage: 250 MG CAPS
     Route: 064
     Dates: start: 20070613, end: 20070613
  6. METHERGINE [Concomitant]
     Dosage: .125 MG TABS
     Route: 064
     Dates: start: 20070613, end: 20070613
  7. NEUER [Concomitant]
     Dosage: 200MG CAPS
     Route: 064
     Dates: start: 20070613, end: 20070613
  8. PENTCILLIN [Concomitant]
     Dosage: 1 G INJ
     Route: 064
     Dates: start: 20070613, end: 20070613
  9. OXYTOCIN [Concomitant]
     Route: 064
     Dates: start: 20070613, end: 20070613

REACTIONS (2)
  - DRUG EXPOSURE DURING PREGNANCY [None]
  - DRUG WITHDRAWAL SYNDROME NEONATAL [None]
